FAERS Safety Report 5812294-6 (Version None)
Quarter: 2008Q3

REPORT INFORMATION
  Report Type: 
  Country: None (occurrence: None)
  Receive Date: 20080714
  Receipt Date: 20080702
  Transmission Date: 20090109
  Serious: Yes (Hospitalization, Other)
  Sender: FDA-Public Use
  Company Number: 2008US001086

PATIENT
  Sex: Female
  Weight: 40 kg

DRUGS (13)
  1. PROGRAF [Suspect]
     Indication: LIVER TRANSPLANT
     Dosage: ORAL, 7 MG, BID, ORAL, 10 MG, BID,  ORAL, 8 MG, TID, ORAL
     Route: 048
     Dates: start: 20070627, end: 20071201
  2. PROGRAF [Suspect]
     Indication: LIVER TRANSPLANT
     Dosage: ORAL, 7 MG, BID, ORAL, 10 MG, BID,  ORAL, 8 MG, TID, ORAL
     Route: 048
     Dates: start: 20080316, end: 20080320
  3. PROGRAF [Suspect]
     Indication: LIVER TRANSPLANT
     Dosage: ORAL, 7 MG, BID, ORAL, 10 MG, BID,  ORAL, 8 MG, TID, ORAL
     Route: 048
     Dates: start: 20080320, end: 20080412
  4. PROGRAF [Suspect]
     Indication: LIVER TRANSPLANT
     Dosage: ORAL, 7 MG, BID, ORAL, 10 MG, BID,  ORAL, 8 MG, TID, ORAL
     Route: 048
     Dates: start: 20080412
  5. RAPAMUNE [Concomitant]
  6. URSODIOL [Concomitant]
  7. MEDROL [Concomitant]
  8. FLUCONAZOLE [Concomitant]
  9. CELEXA [Concomitant]
  10. PROTONIX [Concomitant]
  11. DEPAKOTE [Concomitant]
  12. DAPSONE [Concomitant]
  13. FORTEO [Concomitant]

REACTIONS (12)
  - BILE DUCT OBSTRUCTION [None]
  - BILIARY TRACT DISORDER [None]
  - CHOLANGITIS [None]
  - DRUG LEVEL BELOW THERAPEUTIC [None]
  - DRUG LEVEL FLUCTUATING [None]
  - HEADACHE [None]
  - LIVER TRANSPLANT REJECTION [None]
  - NAUSEA [None]
  - TREATMENT NONCOMPLIANCE [None]
  - TREMOR [None]
  - VOMITING [None]
  - WEIGHT DECREASED [None]
